FAERS Safety Report 12241245 (Version 2)
Quarter: 2017Q2

REPORT INFORMATION
  Report Type: Other
  Country: DE (occurrence: DE)
  Receive Date: 20160406
  Receipt Date: 20170508
  Transmission Date: 20170830
  Serious: Yes (Death)
  Sender: FDA-Public Use
  Company Number: DE-ACTELION-A-CH2016-133898

PATIENT
  Age: 50 Year
  Sex: Male

DRUGS (1)
  1. ZAVESCA [Suspect]
     Active Substance: MIGLUSTAT
     Indication: NIEMANN-PICK DISEASE
     Dosage: 200 MG, TID
     Route: 048
     Dates: start: 2015

REACTIONS (5)
  - Apathy [Unknown]
  - Fall [Unknown]
  - Dysphagia [Fatal]
  - Condition aggravated [Unknown]
  - Aspiration [Fatal]
